FAERS Safety Report 10157491 (Version 1)
Quarter: 2014Q2

REPORT INFORMATION
  Report Type: Spontaneous
  Country: US (occurrence: US)
  Receive Date: 20140507
  Receipt Date: 20140507
  Transmission Date: 20141212
  Serious: Yes (Other)
  Sender: FDA-Public Use
  Company Number: US-TEVA-479495USA

PATIENT
  Age: 42 Year
  Sex: Female

DRUGS (1)
  1. COPAXONE [Suspect]
     Indication: MULTIPLE SCLEROSIS
     Dates: start: 20131216

REACTIONS (2)
  - Abscess bacterial [Unknown]
  - Staphylococcal infection [Unknown]
